FAERS Safety Report 11945026 (Version 1)
Quarter: 2016Q1

REPORT INFORMATION
  Report Type: Spontaneous
  Country: US (occurrence: US)
  Receive Date: 20160125
  Receipt Date: 20160125
  Transmission Date: 20160526
  Serious: Yes (Life-Threatening, Other)
  Sender: FDA-Public Use
  Company Number: US-009507513-1601USA008407

PATIENT
  Age: 33 Year
  Sex: Male

DRUGS (2)
  1. GRASTEK [Suspect]
     Active Substance: PHLEUM PRATENSE POLLEN
     Indication: RHINITIS ALLERGIC
     Dosage: 2800 BIOEQUIVALENT ALLERGY UNITS (BAU), QD
     Route: 060
     Dates: start: 20160118, end: 20160118
  2. BENADRYL [Concomitant]
     Active Substance: DIPHENHYDRAMINE HYDROCHLORIDE

REACTIONS (3)
  - Dysphagia [Recovered/Resolved]
  - Throat tightness [Recovered/Resolved]
  - Throat irritation [Recovered/Resolved]

NARRATIVE: CASE EVENT DATE: 20160118
